FAERS Safety Report 12312152 (Version 1)
Quarter: 2016Q2

REPORT INFORMATION
  Report Type: Spontaneous
  Country: US (occurrence: US)
  Receive Date: 20160427
  Receipt Date: 20160427
  Transmission Date: 20160815
  Serious: Yes (Life-Threatening, Hospitalization)
  Sender: FDA-Public Use
  Company Number: PHHY2016US053966

PATIENT
  Age: 8 Year
  Sex: Male

DRUGS (1)
  1. IRINOTECAN [Suspect]
     Active Substance: IRINOTECAN
     Indication: ALVEOLAR RHABDOMYOSARCOMA
     Route: 065

REACTIONS (3)
  - Acute respiratory failure [Recovered/Resolved]
  - Tumour lysis syndrome [Recovered/Resolved]
  - Pulmonary oedema [Recovered/Resolved]
